FAERS Safety Report 5252995-4 (Version None)
Quarter: 2007Q1

REPORT INFORMATION
  Report Type: 
  Country: None (occurrence: None)
  Receive Date: 20070227
  Receipt Date: 20070214
  Transmission Date: 20070707
  Serious: Yes (Hospitalization)
  Sender: FDA-Public Use
  Company Number: 15634

PATIENT
  Age: 40 Year
  Sex: Male

DRUGS (3)
  1. BLEOMYCIN [Suspect]
     Indication: SEMINOMA
     Dosage: 30 MG/M2 PER_CYCLE
  2. ETOPOSIDE [Concomitant]
  3. CISPLATIN [Concomitant]

REACTIONS (4)
  - ARTERIAL STENOSIS LIMB [None]
  - GANGRENE [None]
  - PERIPHERAL ISCHAEMIA [None]
  - TOE AMPUTATION [None]
